FAERS Safety Report 10021178 (Version 5)
Quarter: 2017Q1

REPORT INFORMATION
  Report Type: Spontaneous
  Country: US (occurrence: US)
  Receive Date: 20140319
  Receipt Date: 20170220
  Transmission Date: 20170428
  Serious: Yes (Other)
  Sender: FDA-Public Use
  Company Number: US-009507513-1403USA005859

PATIENT
  Sex: Female
  Weight: 90.7 kg

DRUGS (3)
  1. FOSAMAX [Suspect]
     Active Substance: ALENDRONATE SODIUM
     Indication: OSTEOPOROSIS PROPHYLAXIS
     Dosage: UNK
     Route: 048
     Dates: start: 199712
  2. FOSAMAX [Suspect]
     Active Substance: ALENDRONATE SODIUM
     Indication: OSTEOPOROSIS PROPHYLAXIS
     Dosage: 70 MG, QW
     Route: 048
     Dates: end: 200811
  3. ALENDRONATE SODIUM. [Suspect]
     Active Substance: ALENDRONATE SODIUM
     Indication: OSTEOPOROSIS PROPHYLAXIS
     Dosage: 70 MG, WEEKLY
     Route: 048
     Dates: start: 20081216, end: 201201

REACTIONS (18)
  - Shoulder arthroplasty [Unknown]
  - Fracture nonunion [Unknown]
  - Clavicle fracture [Unknown]
  - Osteoarthritis [Unknown]
  - Pain in extremity [Unknown]
  - Bursitis [Unknown]
  - Anxiety [Unknown]
  - Depression [Unknown]
  - Drug intolerance [Unknown]
  - Musculoskeletal pain [Unknown]
  - Bursitis [Unknown]
  - Meniere^s disease [Unknown]
  - Hypertension [Unknown]
  - Femur fracture [Unknown]
  - Arthritis [Unknown]
  - Fall [Unknown]
  - Ventricular extrasystoles [Unknown]
  - Hysterectomy [Unknown]

NARRATIVE: CASE EVENT DATE: 2006
